FAERS Safety Report 8016434-2 (Version None)
Quarter: 2011Q4

REPORT INFORMATION
  Report Type: 
  Country: None (occurrence: None)
  Receive Date: 20111230
  Receipt Date: 20111221
  Transmission Date: 20120403
  Serious: Yes (Hospitalization)
  Sender: FDA-Public Use
  Company Number: ES-ABBOTT-11P-144-0885598-00

PATIENT
  Age: 48 Year
  Sex: Male

DRUGS (2)
  1. OMEPRAZOLE [Concomitant]
     Indication: PRODUCT USED FOR UNKNOWN INDICATION
  2. HUMIRA [Suspect]
     Indication: PSORIASIS
     Route: 058
     Dates: start: 20110726, end: 20111025

REACTIONS (11)
  - DYSLIPIDAEMIA [None]
  - NEPHROLITHIASIS [None]
  - DEFICIENCY OF BILE SECRETION [None]
  - AUTOIMMUNE HEPATITIS [None]
  - ASTHENIA [None]
  - CHOLURIA [None]
  - DIARRHOEA [None]
  - CYTOMEGALOVIRUS INFECTION [None]
  - DIABETES MELLITUS [None]
  - JAUNDICE [None]
  - CHOLELITHIASIS [None]
